FAERS Safety Report 8307466-5 (Version None)
Quarter: 2012Q2

REPORT INFORMATION
  Report Type: 
  Country: None (occurrence: None)
  Receive Date: 20120424
  Receipt Date: 20120418
  Transmission Date: 20120825
  Serious: No
  Sender: FDA-Public Use
  Company Number: US-PFIZER INC-2012096658

PATIENT
  Sex: Female
  Weight: 51.701 kg

DRUGS (7)
  1. LYRICA [Suspect]
     Indication: NEURALGIA
     Dosage: 50 MG, UNK
     Route: 048
     Dates: start: 20120301, end: 20120401
  2. NICOTROL [Concomitant]
     Indication: COUGH
  3. PERCOCET [Concomitant]
     Indication: PAIN
     Dosage: UNK
  4. PREMPRO [Concomitant]
     Indication: MENOPAUSAL DISORDER
     Dosage: UNK
  5. XANAX [Concomitant]
     Indication: NERVOUSNESS
  6. NICOTROL [Concomitant]
     Indication: BRONCHITIS
     Dosage: UNK
  7. XANAX [Concomitant]
     Indication: PANIC ATTACK
     Dosage: UNK

REACTIONS (5)
  - SKIN LESION [None]
  - RASH PUSTULAR [None]
  - RASH [None]
  - PRURITUS GENERALISED [None]
  - RASH PAPULAR [None]
